FAERS Safety Report 6288563-5 (Version None)
Quarter: 2009Q3

REPORT INFORMATION
  Report Type: 
  Country: None (occurrence: None)
  Receive Date: 20090729
  Receipt Date: 20090721
  Transmission Date: 20100115
  Serious: Yes (Hospitalization)
  Sender: FDA-Public Use
  Company Number: US-ELI_LILLY_AND_COMPANY-US200907004532

PATIENT
  Sex: Female
  Weight: 197.73 kg

DRUGS (19)
  1. BYETTA [Suspect]
     Indication: TYPE 2 DIABETES MELLITUS
     Dosage: 5 UG, 2/D
     Route: 058
     Dates: start: 20050101, end: 20050101
  2. BYETTA [Suspect]
     Dosage: 10 UG, 2/D
     Route: 058
     Dates: start: 20050101
  3. SULFASALAZINE [Concomitant]
     Indication: ARTHRITIS
     Dosage: 1500 MG, EACH MORNING
  4. SULFASALAZINE [Concomitant]
     Dosage: 1500 MG, EACH EVENING
  5. NOVOLOG [Concomitant]
     Indication: TYPE 2 DIABETES MELLITUS
     Dosage: UNK, AS NEEDED
  6. LANTUS [Concomitant]
     Indication: TYPE 2 DIABETES MELLITUS
     Dosage: 100 U, EACH EVENING
  7. CALCIUM WITH VITAMIN D [Concomitant]
     Dosage: 600 MG, 2/D
  8. HYDROCHLOROTHIAZIDE [Concomitant]
     Indication: FLUID RETENTION
     Dosage: 25 MG, DAILY (1/D)
  9. TRAMADOL [Concomitant]
     Indication: PAIN
     Dosage: 100 MG, 3/D
  10. NEXIUM [Concomitant]
     Indication: DYSPEPSIA
     Dosage: 40 MG, UNK
  11. METFORMIN [Concomitant]
     Indication: TYPE 2 DIABETES MELLITUS
     Dosage: 1000 MG, EACH MORNING
  12. METFORMIN [Concomitant]
     Dosage: 500 MG, EACH EVENING
  13. CYMBALTA [Concomitant]
     Indication: DEPRESSION
     Dosage: 60 MG, UNK
  14. VITRON C [Concomitant]
     Indication: BLOOD IRON
  15. SIMVASTATIN [Concomitant]
     Indication: BLOOD CHOLESTEROL INCREASED
     Dosage: 20 MG, DAILY (1/D)
  16. AMLODIPINE [Concomitant]
     Dosage: 5 MG, DAILY (1/D)
  17. MULTI-VITAMIN [Concomitant]
  18. AVAPRO [Concomitant]
     Indication: BLOOD PRESSURE INCREASED
     Dosage: 300 MG, UNK
  19. AVANDIA [Concomitant]
     Indication: TYPE 2 DIABETES MELLITUS
     Dosage: 2 MG, DAILY (1/D)

REACTIONS (8)
  - ARTHRALGIA [None]
  - ARTHRITIS [None]
  - BLOOD GLUCOSE DECREASED [None]
  - BLOOD GLUCOSE INCREASED [None]
  - KNEE ARTHROPLASTY [None]
  - OFF LABEL USE [None]
  - TREMOR [None]
  - WEIGHT INCREASED [None]
